FAERS Safety Report 4931332-6 (Version None)
Quarter: 2006Q1

REPORT INFORMATION
  Report Type: 
  Country: None (occurrence: None)
  Receive Date: 20060228
  Receipt Date: 20060216
  Transmission Date: 20060701
  Serious: Yes (Death)
  Sender: FDA-Public Use
  Company Number: 06H-163-0305218-00

PATIENT
  Age: 58 Year
  Sex: Female
  Weight: 64 kg

DRUGS (1)
  1. MILRINONE LACTATE [Suspect]
     Dosage: 0.2 MG, INTRAVENOUS
     Route: 042
     Dates: start: 20060113, end: 20060113

REACTIONS (4)
  - HYPOTENSION [None]
  - MEDICATION ERROR [None]
  - OVERDOSE [None]
  - THERAPY NON-RESPONDER [None]
